FAERS Safety Report 25400560 (Version 1)
Quarter: 2025Q2

REPORT INFORMATION
  Report Type: Spontaneous
  Country: US (occurrence: US)
  Receive Date: 20250605
  Receipt Date: 20250605
  Transmission Date: 20250716
  Serious: Yes (Hospitalization, Other)
  Sender: AUROBINDO
  Company Number: US-AUROBINDO-AUR-APL-2025-027890

PATIENT
  Age: 65 Year
  Sex: Male

DRUGS (4)
  1. PREDNISONE [Suspect]
     Active Substance: PREDNISONE
     Indication: Ventricular tachycardia
     Route: 065
  2. INFLIXIMAB [Suspect]
     Active Substance: INFLIXIMAB
     Indication: Ventricular tachycardia
     Route: 065
  3. MEXILETINE [Suspect]
     Active Substance: MEXILETINE
     Indication: Ventricular tachycardia
     Route: 065
  4. QUINIDINE [Suspect]
     Active Substance: QUINIDINE
     Indication: Ventricular tachycardia
     Route: 065

REACTIONS (1)
  - Drug ineffective [Unknown]
